FAERS Safety Report 4932552-7 (Version None)
Quarter: 2006Q1

REPORT INFORMATION
  Report Type: 
  Country: None (occurrence: None)
  Receive Date: 20060228
  Receipt Date: 20060203
  Transmission Date: 20060701
  Serious: Yes (Other)
  Sender: FDA-Public Use
  Company Number: US200602001063

PATIENT
  Age: 70 Year
  Sex: Male

DRUGS (4)
  1. HUMALOG PEN [Suspect]
     Indication: DIABETES MELLITUS
  2. HUMALOG [Suspect]
     Indication: DIABETES MELLITUS
     Dosage: AS NEEDED
     Dates: start: 20020101
  3. MICRONASE [Concomitant]
  4. LANTUS [Concomitant]

REACTIONS (8)
  - BLOOD GLUCOSE DECREASED [None]
  - BLOOD GLUCOSE INCREASED [None]
  - JOINT RANGE OF MOTION DECREASED [None]
  - LOSS OF CONSCIOUSNESS [None]
  - PHARMACEUTICAL PRODUCT COMPLAINT [None]
  - RENAL CELL CARCINOMA STAGE UNSPECIFIED [None]
  - WOUND INFECTION STAPHYLOCOCCAL [None]
  - WRONG DRUG ADMINISTERED [None]
